FAERS Safety Report 8410367-5 (Version None)
Quarter: 2012Q2

REPORT INFORMATION
  Report Type: 
  Country: None (occurrence: None)
  Receive Date: 20120529
  Receipt Date: 20120514
  Transmission Date: 20120825
  Serious: Yes (Hospitalization, Other)
  Sender: FDA-Public Use
  Company Number: 2012MA006119

PATIENT
  Age: 4 Year
  Sex: Male

DRUGS (1)
  1. CLONAZEPAM [Suspect]

REACTIONS (10)
  - ATRIOVENTRICULAR BLOCK FIRST DEGREE [None]
  - ATRIOVENTRICULAR BLOCK SECOND DEGREE [None]
  - UNRESPONSIVE TO STIMULI [None]
  - MIOSIS [None]
  - BLOOD PRESSURE DIASTOLIC INCREASED [None]
  - ATAXIA [None]
  - ACCIDENTAL DRUG INTAKE BY CHILD [None]
  - HYPOTONIA [None]
  - HYPOPNOEA [None]
  - DRUG LEVEL ABOVE THERAPEUTIC [None]
